FAERS Safety Report 25689768 (Version 1)
Quarter: 2025Q3

REPORT INFORMATION
  Report Type: Spontaneous
  Country: CN (occurrence: CN)
  Receive Date: 20250818
  Receipt Date: 20250818
  Transmission Date: 20251021
  Serious: Yes (Hospitalization, Other)
  Sender: NOVITIUM PHARMA
  Company Number: CN-NOVITIUMPHARMA-2025CNNVP02034

PATIENT
  Age: 36 Year
  Sex: Female

DRUGS (7)
  1. LIDOCAINE HYDROCHLORIDE [Suspect]
     Active Substance: LIDOCAINE HYDROCHLORIDE
     Indication: Epidural anaesthesia
  2. ROPIVACAINE [Concomitant]
     Active Substance: ROPIVACAINE
     Indication: Epidural anaesthesia
  3. CITICOLINE [Concomitant]
     Active Substance: CITICOLINE
     Indication: Oedema
  4. METHYLCOBALAMIN [Concomitant]
     Active Substance: METHYLCOBALAMIN
     Indication: Oedema
  5. MANNITOL [Concomitant]
     Active Substance: MANNITOL
  6. FUROSEMIDE [Concomitant]
     Active Substance: FUROSEMIDE
  7. ENOXAPARIN SODIUM [Concomitant]
     Active Substance: ENOXAPARIN SODIUM
     Indication: Thrombosis prophylaxis

REACTIONS (2)
  - Paraplegia [Recovering/Resolving]
  - Maternal exposure during delivery [Unknown]
